FAERS Safety Report 12147613 (Version 3)
Quarter: 2016Q1

REPORT INFORMATION
  Report Type: Report from Study
  Country: IN (occurrence: IN)
  Receive Date: 20160304
  Receipt Date: 20160323
  Transmission Date: 20160526
  Serious: Yes (Hospitalization)
  Sender: FDA-Public Use
  Company Number: IN-BIOGEN-2016BI00194009

PATIENT
  Age: 38 Year
  Sex: Female
  Weight: 58 kg

DRUGS (5)
  1. NERVIJEN [Concomitant]
     Route: 048
     Dates: start: 20151109
  2. LIOFEN [Concomitant]
     Indication: PAIN MANAGEMENT
     Route: 048
     Dates: start: 20160130
  3. MAXGALIN [Concomitant]
     Indication: NEURALGIA
     Route: 048
     Dates: start: 20160130
  4. GABAPIN [Concomitant]
     Active Substance: GABAPENTIN
     Indication: NEURALGIA
     Route: 048
     Dates: start: 20160130
  5. BG00012 [Suspect]
     Active Substance: DIMETHYL FUMARATE
     Indication: MULTIPLE SCLEROSIS
     Route: 048
     Dates: start: 20110618, end: 20160128

REACTIONS (1)
  - Subcutaneous abscess [Recovered/Resolved]

NARRATIVE: CASE EVENT DATE: 20160223
